FAERS Safety Report 5838361-9 (Version None)
Quarter: 2008Q3

REPORT INFORMATION
  Report Type: 
  Country: None (occurrence: None)
  Receive Date: 20080806
  Receipt Date: 20080801
  Transmission Date: 20090109
  Serious: Yes (Life-Threatening, Hospitalization)
  Sender: FDA-Public Use
  Company Number: 20085424

PATIENT
  Sex: Male

DRUGS (1)
  1. LIORESAL [Suspect]
     Indication: MUSCLE SPASTICITY
     Dosage: 185-300 MCG, DAILY, INTRATHECAL
     Route: 037

REACTIONS (13)
  - BURNING SENSATION [None]
  - DRUG INEFFECTIVE [None]
  - DYSGEUSIA [None]
  - HEART RATE DECREASED [None]
  - MALAISE [None]
  - MEDICAL DEVICE SITE REACTION [None]
  - MUSCLE SPASMS [None]
  - OVERDOSE [None]
  - PRURITUS [None]
  - RED BLOOD CELL COUNT ABNORMAL [None]
  - SOMNOLENCE [None]
  - WHITE BLOOD CELL COUNT ABNORMAL [None]
  - WITHDRAWAL SYNDROME [None]
